FAERS Safety Report 6710929-7 (Version None)
Quarter: 2010Q2

REPORT INFORMATION
  Report Type: 
  Country: None (occurrence: None)
  Receive Date: 20100505
  Receipt Date: 20100426
  Transmission Date: 20101027
  Serious: No
  Sender: FDA-Public Use
  Company Number: 2009BI040414

PATIENT
  Sex: Female

DRUGS (1)
  1. TYSABRI [Suspect]
     Indication: MULTIPLE SCLEROSIS
     Route: 042
     Dates: start: 20090821

REACTIONS (13)
  - ARTHRALGIA [None]
  - BLADDER DISORDER [None]
  - BREAST PAIN [None]
  - BRONCHITIS [None]
  - CYSTITIS [None]
  - FALL [None]
  - LOCALISED INFECTION [None]
  - MEMORY IMPAIRMENT [None]
  - MUSCULAR WEAKNESS [None]
  - NASOPHARYNGITIS [None]
  - SINUSITIS [None]
  - VISION BLURRED [None]
  - WHITE BLOOD CELL COUNT INCREASED [None]
